FAERS Safety Report 9806205 (Version 1)
Quarter: 2014Q1

REPORT INFORMATION
  Report Type: Spontaneous
  Country: US (occurrence: US)
  Receive Date: 20140109
  Receipt Date: 20140109
  Transmission Date: 20141002
  Serious: Yes (Death, Other)
  Sender: FDA-Public Use
  Company Number: US-UCBSA-108030

PATIENT
  Age: 54 Year
  Sex: Female

DRUGS (10)
  1. ACETAMINOPHEN/ HYDROCODONE [Suspect]
     Dosage: INGESTION
     Route: 048
  2. ALPRAZOLAM [Suspect]
     Dosage: INGESTION
     Route: 048
  3. MEPROBAMATE [Suspect]
     Dosage: INGESTION
     Route: 048
  4. CARISOPRODOL [Suspect]
     Dosage: INGESTION
     Route: 048
  5. VENLAFAXINE [Suspect]
     Dosage: INGESTION
     Route: 048
  6. MORPHINE [Suspect]
     Dosage: INGESTION
     Route: 048
  7. DIPHENHYDRAMINE [Suspect]
     Dosage: INGESTION
     Route: 048
  8. QUETIAPINE [Suspect]
     Dosage: INGESTION
     Route: 048
  9. LAMOTRIGINE [Suspect]
     Dosage: INGESTION
     Route: 048
  10. GABAPENTIN [Suspect]
     Dosage: INGESTION
     Route: 048

REACTIONS (2)
  - Cardio-respiratory arrest [Fatal]
  - Completed suicide [Fatal]
